FAERS Safety Report 4301542-X (Version None)
Quarter: 2004Q1

REPORT INFORMATION
  Report Type: 
  Country: None (occurrence: None)
  Receive Date: 20040219
  Receipt Date: 20040204
  Transmission Date: 20041129
  Serious: Yes (Hospitalization)
  Sender: FDA-Public Use
  Company Number: 2004IM000266

PATIENT
  Age: 63 Year
  Sex: Male

DRUGS (3)
  1. ADVAFERON (A643_INTERFERON ALFACON-1) [Suspect]
     Indication: HEPATITIS C
     Dosage: 18 MU; QD, SUBCUTANEOUS
     Route: 058
     Dates: start: 20020507
  2. CETIRIZINE HCL [Concomitant]
  3. GLICLAZIDE [Concomitant]

REACTIONS (2)
  - EATING DISORDER [None]
  - ENTEROBACTER PNEUMONIA [None]
